FAERS Safety Report 5376981-9 (Version None)
Quarter: 2007Q3

REPORT INFORMATION
  Report Type: 
  Country: None (occurrence: None)
  Receive Date: 20070703
  Receipt Date: 20070622
  Transmission Date: 20080115
  Serious: Yes (Hospitalization, Other)
  Sender: FDA-Public Use
  Company Number: US-JNJFOC-20070606042

PATIENT
  Sex: Female
  Weight: 102.06 kg

DRUGS (4)
  1. DURAGESIC-100 [Suspect]
     Indication: FIBROMYALGIA
     Route: 062
  2. LYRICA [Concomitant]
     Indication: NEURALGIA
     Route: 048
  3. ESTRADIOL [Concomitant]
     Indication: HORMONE REPLACEMENT THERAPY
     Route: 048
  4. CELEBREX [Concomitant]
     Indication: MYALGIA
     Route: 048

REACTIONS (5)
  - BLINDNESS [None]
  - CARDIAC INFECTION [None]
  - CEREBROVASCULAR ACCIDENT [None]
  - DEPRESSION [None]
  - MULTIPLE SCLEROSIS [None]
